FAERS Safety Report 8226745-3 (Version None)
Quarter: 2012Q1

REPORT INFORMATION
  Report Type: 
  Country: None (occurrence: None)
  Receive Date: 20120322
  Receipt Date: 20120313
  Transmission Date: 20120608
  Serious: Yes (Hospitalization, Other)
  Sender: FDA-Public Use
  Company Number: JP-BAYER-2012-023251

PATIENT
  Age: 58 Year
  Sex: Male
  Weight: 67 kg

DRUGS (10)
  1. ASPIRIN [Interacting]
     Dosage: DAILY DOSE 75 MG
     Dates: start: 20100101
  2. ISOSORBIDE DINITRATE [Concomitant]
     Dosage: DAILY DOSE 40 MG
     Route: 062
  3. CLOPIDOGREL BISULFATE [Interacting]
     Dosage: DAILY DOSE 300 MG
     Route: 048
     Dates: start: 20100101, end: 20100101
  4. DILTIAZEM HYDROCHLORIDE [Concomitant]
     Dosage: DAILY DOSE 100 MG
  5. ASPIRIN [Suspect]
     Indication: ACUTE MYOCARDIAL INFARCTION
     Dosage: DAILY DOSE 200 MG
     Route: 048
     Dates: end: 20100501
  6. CLOPIDOGREL BISULFATE [Interacting]
     Dosage: DAILY DOSE 75 MG
     Route: 048
     Dates: start: 20100101
  7. ASPIRIN [Interacting]
     Dosage: DAILY DOSE 300 MG
     Dates: start: 20100101, end: 20100101
  8. ATORVASTATIN CALCIUM [Concomitant]
     Dosage: DAILY DOSE 5 MG
     Route: 048
  9. CLOPIDOGREL BISULFATE [Interacting]
     Dosage: DAILY DOSE 75 MG
     Route: 048
     Dates: end: 20100501
  10. CANDESARTAN CILEXETIL [Concomitant]
     Dosage: DAILY DOSE 4 MG
     Route: 048

REACTIONS (3)
  - WOUND HAEMORRHAGE [None]
  - THROMBOSIS IN DEVICE [None]
  - ACUTE MYOCARDIAL INFARCTION [None]
